FAERS Safety Report 13609364 (Version 9)
Quarter: 2017Q4

REPORT INFORMATION
  Report Type: Spontaneous
  Country: GB (occurrence: GB)
  Receive Date: 20170602
  Receipt Date: 20171108
  Transmission Date: 20180320
  Serious: Yes (Hospitalization)
  Sender: FDA-Public Use
  Company Number: GB-TEVA-771688ACC

PATIENT
  Age: 16 Year
  Sex: Female
  Weight: 66.4 kg

DRUGS (9)
  1. RISPERIDONE. [Suspect]
     Active Substance: RISPERIDONE
     Indication: AFFECTIVE DISORDER
     Dosage: 7 MILLIGRAM DAILY;
     Route: 048
     Dates: start: 201609, end: 2017
  2. LYRICA [Suspect]
     Active Substance: PREGABALIN
     Dosage: 300 MILLIGRAM DAILY;
     Route: 048
     Dates: start: 2017
  3. CLONAZEPAM? [Concomitant]
     Dosage: .5 MILLIGRAM DAILY;
     Route: 048
     Dates: start: 20170516
  4. RISPERIDONE. [Suspect]
     Active Substance: RISPERIDONE
     Dosage: 1 MILLIGRAM DAILY;
     Route: 048
     Dates: start: 201608, end: 2016
  5. LYRICA [Suspect]
     Active Substance: PREGABALIN
     Indication: POST-TRAUMATIC STRESS DISORDER
     Dosage: 400 MILLIGRAM DAILY;
     Route: 048
     Dates: start: 201609, end: 20170410
  6. LYRICA [Suspect]
     Active Substance: PREGABALIN
     Dosage: 300 MILLIGRAM DAILY;
     Route: 048
     Dates: start: 201609, end: 20170410
  7. MELATONIN? [Concomitant]
     Indication: INSOMNIA
     Dosage: 4 MILLIGRAM DAILY;
     Route: 048
     Dates: start: 201609, end: 201705
  8. LYRICA [Suspect]
     Active Substance: PREGABALIN
     Indication: ANXIETY
     Dosage: 200 MILLIGRAM DAILY;
     Route: 065
     Dates: start: 20170410, end: 2017
  9. CLONAZEPAM? [Concomitant]
     Indication: AGITATION
     Dosage: 2 MILLIGRAM DAILY; 1 MG DECREASED TO 0.5 MG
     Route: 048
     Dates: start: 20170508, end: 20170516

REACTIONS (4)
  - Condition aggravated [Not Recovered/Not Resolved]
  - Galactorrhoea [Recovered/Resolved]
  - Joint stiffness [Recovered/Resolved]
  - Hyperprolactinaemia [Recovered/Resolved]

NARRATIVE: CASE EVENT DATE: 201702
